FAERS Safety Report 18484381 (Version 1)
Quarter: 2020Q4

REPORT INFORMATION
  Report Type: Spontaneous
  Country: TR (occurrence: TR)
  Receive Date: 20201109
  Receipt Date: 20201109
  Transmission Date: 20210114
  Serious: Yes (Hospitalization, Other)
  Sender: FDA-Public Use
  Company Number: TR-CELLTRION INC.-2020TR030799

PATIENT

DRUGS (12)
  1. CHLORPHENOXAMINE. [Concomitant]
     Active Substance: CHLORPHENOXAMINE
     Dosage: 5 MG
     Route: 042
  2. ACETAMINOPHEN. [Concomitant]
     Active Substance: ACETAMINOPHEN
     Dosage: 10 MG/KG
     Route: 042
  3. TRIMETHOPRIM SULFAMETHOXAZOLE [Concomitant]
     Active Substance: SULFAMETHOXAZOLE\TRIMETHOPRIM
     Dosage: 150 MG/M2/DAY IN 3 DIVIDED DOSES
  4. RITUXIMAB (UNKNOWN) [Suspect]
     Active Substance: RITUXIMAB
     Dosage: 375 MG/M2 OVER 4 HOURS
     Route: 042
  5. ACETAMINOPHEN. [Concomitant]
     Active Substance: ACETAMINOPHEN
     Indication: PREMEDICATION
     Dosage: 10 MG/KG
     Route: 042
  6. CHLORPHENOXAMINE. [Concomitant]
     Active Substance: CHLORPHENOXAMINE
     Indication: PREMEDICATION
     Dosage: 5 MG
     Route: 042
  7. TRIMETHOPRIM SULFAMETHOXAZOLE [Concomitant]
     Active Substance: SULFAMETHOXAZOLE\TRIMETHOPRIM
     Indication: ANTIFUNGAL PROPHYLAXIS
     Dosage: 150 MG/M2/DAY IN 3 DIVIDED DOSES
  8. TRIMETHOPRIM SULFAMETHOXAZOLE [Concomitant]
     Active Substance: SULFAMETHOXAZOLE\TRIMETHOPRIM
     Dosage: 150 MG/M2/DAY IN 3 DIVIDED DOSES
  9. RITUXIMAB (UNKNOWN) [Suspect]
     Active Substance: RITUXIMAB
     Indication: NEPHROTIC SYNDROME
     Dosage: 375 MG/M2 OVER 4 HOURS
     Route: 042
  10. RITUXIMAB (UNKNOWN) [Suspect]
     Active Substance: RITUXIMAB
     Dosage: 375 MG/M2 OVER 4 HOURS
     Route: 042
  11. CHLORPHENOXAMINE. [Concomitant]
     Active Substance: CHLORPHENOXAMINE
     Dosage: 5 MG
     Route: 042
  12. ACETAMINOPHEN. [Concomitant]
     Active Substance: ACETAMINOPHEN
     Dosage: 10 MG/KG
     Route: 042

REACTIONS (3)
  - Anaphylactic reaction [Recovered/Resolved]
  - Serum sickness [Recovered/Resolved]
  - Off label use [Unknown]
